FAERS Safety Report 20488959 (Version 1)
Quarter: 2022Q1

REPORT INFORMATION
  Report Type: Spontaneous
  Country: US (occurrence: None)
  Receive Date: 20220217
  Receipt Date: 20220217
  Transmission Date: 20220423
  Serious: Yes (unspecified)
  Sender: FDA-Public Use
  Company Number: None

PATIENT
  Age: 70 Year
  Sex: Male

DRUGS (1)
  1. HEPARIN CALCIUM [Suspect]
     Active Substance: HEPARIN CALCIUM
     Indication: Pulmonary embolism
     Dosage: 25000UNTS PER HOUR IV? ?
     Route: 042
     Dates: start: 20220203, end: 20220211

REACTIONS (7)
  - Intra-abdominal haematoma [None]
  - Tachycardia [None]
  - Hypertension [None]
  - Abdominal distension [None]
  - Condition aggravated [None]
  - Haemoglobin decreased [None]
  - Intra-abdominal fluid collection [None]

NARRATIVE: CASE EVENT DATE: 20220211
